FAERS Safety Report 18960241 (Version 1)
Quarter: 2021Q1

REPORT INFORMATION
  Report Type: Spontaneous
  Country: GB (occurrence: GB)
  Receive Date: 20210302
  Receipt Date: 20210302
  Transmission Date: 20210420
  Serious: Yes (Other)
  Sender: FDA-Public Use
  Company Number: GB-TEVA-2021-GB-1882630

PATIENT
  Age: 30 Year
  Sex: Male

DRUGS (2)
  1. PROMETHAZINE HYDROCHLORIDE. [Suspect]
     Active Substance: PROMETHAZINE HYDROCHLORIDE
     Indication: PRODUCT USED FOR UNKNOWN INDICATION
     Dosage: 2 DF;
     Route: 065
  2. PROMETHAZINE HYDROCHLORIDE. [Suspect]
     Active Substance: PROMETHAZINE HYDROCHLORIDE
     Dosage: 1 DF
     Route: 065

REACTIONS (7)
  - Loss of consciousness [Unknown]
  - Headache [Unknown]
  - Drug hypersensitivity [Unknown]
  - Product label confusion [Unknown]
  - Hyperhidrosis [Unknown]
  - Sleep disorder [Unknown]
  - Dyspnoea [Unknown]
